FAERS Safety Report 9330524 (Version 1)
Quarter: 2013Q2

REPORT INFORMATION
  Report Type: Spontaneous
  Country: US (occurrence: US)
  Receive Date: 20130605
  Receipt Date: 20130605
  Transmission Date: 20140414
  Serious: Yes (Hospitalization, Congenital Anomaly, Other)
  Sender: FDA-Public Use
  Company Number: US-SUN PHARMACEUTICAL INDUSTRIES LTD-2013SUN00664

PATIENT
  Age: 33 Week
  Sex: Male

DRUGS (2)
  1. LITHIUM CARBONATE TABLETS, USP 300MG [Suspect]
     Indication: PRODUCT USED FOR UNKNOWN INDICATION
     Dosage: UNK MG, UNK
     Route: 064
  2. CLOZAPINE [Concomitant]
     Indication: PRODUCT USED FOR UNKNOWN INDICATION
     Dosage: UNK MG, UNK
     Route: 064

REACTIONS (8)
  - Ductus arteriosus premature closure [Unknown]
  - Cardiomegaly [Unknown]
  - Congenital tricuspid valve incompetence [Not Recovered/Not Resolved]
  - Dilatation ventricular [Unknown]
  - Right atrial dilatation [Unknown]
  - Congenital pulmonary hypertension [Unknown]
  - Atrial septal defect [Unknown]
  - Metabolic acidosis [Unknown]
